FAERS Safety Report 17446966 (Version 1)
Quarter: 2020Q1

REPORT INFORMATION
  Report Type: Spontaneous
  Country: CA (occurrence: CA)
  Receive Date: 20200221
  Receipt Date: 20200221
  Transmission Date: 20200409
  Serious: Yes (Other)
  Sender: FDA-Public Use
  Company Number: CA-TEVA-2020-CA-1187287

PATIENT
  Age: 34 Year
  Sex: Female

DRUGS (5)
  1. IMMUNE GLOBULIN (HUMAN) [Suspect]
     Active Substance: HUMAN IMMUNOGLOBULIN G
     Indication: OFF LABEL USE
     Route: 065
  2. IMMUNE GLOBULIN (HUMAN) [Suspect]
     Active Substance: HUMAN IMMUNOGLOBULIN G
     Indication: DERMATOMYOSITIS
     Route: 042
  3. METHOTREXATE. [Suspect]
     Active Substance: METHOTREXATE
     Indication: DERMATOMYOSITIS
     Route: 065
  4. HYDROXYCHLOROQUINE SULFATE. [Suspect]
     Active Substance: HYDROXYCHLOROQUINE SULFATE
     Indication: DERMATOMYOSITIS
     Route: 065
  5. PREDNISONE. [Suspect]
     Active Substance: PREDNISONE
     Indication: DERMATOMYOSITIS
     Route: 065

REACTIONS (4)
  - Drug exposure before pregnancy [Recovered/Resolved]
  - Maternal exposure during pregnancy [Recovered/Resolved]
  - Placental insufficiency [Recovered/Resolved]
  - Premature delivery [Recovered/Resolved]
